FAERS Safety Report 5080393-5 (Version None)
Quarter: 2006Q3

REPORT INFORMATION
  Report Type: 
  Country: None (occurrence: None)
  Receive Date: 20060815
  Receipt Date: 20060808
  Transmission Date: 20061208
  Serious: Yes (Other)
  Sender: FDA-Public Use
  Company Number: US-JNJFOC-20060506547

PATIENT
  Sex: Male

DRUGS (2)
  1. DITROPAN XL [Suspect]
     Indication: POLLAKIURIA
     Route: 048
  2. EXELON [Concomitant]

REACTIONS (6)
  - AMNESIA [None]
  - APATHY [None]
  - MENTAL STATUS CHANGES [None]
  - MOBILITY DECREASED [None]
  - MUSCLE SPASMS [None]
  - TREMOR [None]
